FAERS Safety Report 8354065-5 (Version None)
Quarter: 2012Q2

REPORT INFORMATION
  Report Type: 
  Country: None (occurrence: None)
  Receive Date: 20120511
  Receipt Date: 20120509
  Transmission Date: 20120825
  Serious: Yes (Other)
  Sender: FDA-Public Use
  Company Number: US-ROCHE-782666

PATIENT
  Sex: Female
  Weight: 47.67 kg

DRUGS (4)
  1. ACCUTANE [Suspect]
     Dosage: 2 ND COURSE
  2. ACCUTANE [Suspect]
     Indication: ACNE
     Route: 065
     Dates: start: 20010101, end: 20020101
  3. ORTHO TRI-CYCLEN [Concomitant]
     Indication: CONTRACEPTION
  4. AMNESTEEM [Suspect]
     Indication: ACNE
     Route: 065
     Dates: start: 20030101, end: 20030101

REACTIONS (4)
  - HAEMORRHOIDS [None]
  - INFLAMMATORY BOWEL DISEASE [None]
  - COLITIS ULCERATIVE [None]
  - STRESS [None]
